FAERS Safety Report 11553326 (Version 1)
Quarter: 2015Q3

REPORT INFORMATION
  Report Type: Spontaneous
  Country: US (occurrence: None)
  Receive Date: 20150924
  Receipt Date: 20150924
  Transmission Date: 20151125
  Serious: Yes (Hospitalization)
  Sender: FDA-Public Use
  Company Number: None

PATIENT
  Age: 73 Year
  Sex: Female
  Weight: 113.4 kg

DRUGS (14)
  1. ATENOLOL. [Concomitant]
     Active Substance: ATENOLOL
  2. FUROSEMIDE. [Concomitant]
     Active Substance: FUROSEMIDE
  3. CALCIUM GLUCONATE 4.65MEQ/10ML [Suspect]
     Active Substance: CALCIUM GLUCONATE
     Indication: HYPERKALAEMIA
     Route: 042
     Dates: start: 20150907, end: 20150907
  4. KAYEXALATE [Concomitant]
     Active Substance: SODIUM POLYSTYRENE SULFONATE
  5. RANITIDINE [Concomitant]
     Active Substance: RANITIDINE\RANITIDINE HYDROCHLORIDE
  6. ALLOPURINOL. [Concomitant]
     Active Substance: ALLOPURINOL
  7. LEVOTHYROXINE. [Concomitant]
     Active Substance: LEVOTHYROXINE
  8. DEXTROSE. [Concomitant]
     Active Substance: DEXTROSE
  9. HEPARIN [Concomitant]
     Active Substance: HEPARIN SODIUM
  10. FLUOXETINE [Concomitant]
     Active Substance: FLUOXETINE\FLUOXETINE HYDROCHLORIDE
  11. CALCIUM GLUCONATE 4.65MEQ/10ML [Suspect]
     Active Substance: CALCIUM GLUCONATE
     Indication: ADJUVANT THERAPY
     Route: 042
     Dates: start: 20150907, end: 20150907
  12. ASPIRIN. [Concomitant]
     Active Substance: ASPIRIN
  13. HUMULIN R [Concomitant]
     Active Substance: INSULIN HUMAN
  14. IMDUR [Concomitant]
     Active Substance: ISOSORBIDE MONONITRATE

REACTIONS (5)
  - Flushing [None]
  - Hypertension [None]
  - Heart rate abnormal [None]
  - Dyspnoea [None]
  - Tachycardia [None]

NARRATIVE: CASE EVENT DATE: 20150907
